FAERS Safety Report 14681925 (Version 1)
Quarter: 2018Q1

REPORT INFORMATION
  Report Type: Report from Study
  Country: US (occurrence: US)
  Receive Date: 20180326
  Receipt Date: 20180326
  Transmission Date: 20180509
  Serious: Yes (Hospitalization)
  Sender: FDA-Public Use
  Company Number: US-ACTELION-A-NJ2017-154448

PATIENT
  Age: 62 Year
  Sex: Female

DRUGS (16)
  1. LETAIRIS [Concomitant]
     Active Substance: AMBRISENTAN
  2. ACEBUTOLOL [Concomitant]
     Active Substance: ACEBUTOLOL
  3. PREDNISONE. [Concomitant]
     Active Substance: PREDNISONE
  4. UPTRAVI [Suspect]
     Active Substance: SELEXIPAG
     Indication: PULMONARY ARTERIAL HYPERTENSION
     Dosage: 200 MCG, BID
     Route: 048
     Dates: start: 20170329
  5. COUMADIN [Concomitant]
     Active Substance: WARFARIN SODIUM
  6. POTASSIUM CHLORIDE. [Concomitant]
     Active Substance: POTASSIUM CHLORIDE
  7. METHOTREXATE. [Concomitant]
     Active Substance: METHOTREXATE
  8. PLAQUENIL [Concomitant]
     Active Substance: HYDROXYCHLOROQUINE SULFATE
  9. SYNTHROID [Concomitant]
     Active Substance: LEVOTHYROXINE SODIUM
  10. ISOSORBIDE. [Concomitant]
     Active Substance: ISOSORBIDE
  11. MAGNESIUM [Concomitant]
     Active Substance: MAGNESIUM
  12. UPTRAVI [Suspect]
     Active Substance: SELEXIPAG
     Dosage: 400 MCG, BID
     Route: 048
     Dates: start: 20170329
  13. PROLIA [Concomitant]
     Active Substance: DENOSUMAB
  14. VERAPAMIL [Concomitant]
     Active Substance: VERAPAMIL HYDROCHLORIDE
  15. DEMADEX [Concomitant]
     Active Substance: TORSEMIDE
  16. UPTRAVI [Suspect]
     Active Substance: SELEXIPAG
     Dosage: 200 MCG/400 MCG AM/PM
     Route: 048

REACTIONS (5)
  - Limb injury [Unknown]
  - Oxygen therapy [Unknown]
  - Peripheral swelling [Unknown]
  - Malaise [Unknown]
  - Anaemia [Unknown]
